FAERS Safety Report 24036880 (Version 3)
Quarter: 2025Q1

REPORT INFORMATION
  Report Type: Report from Study
  Country: US (occurrence: US)
  Receive Date: 20240701
  Receipt Date: 20250120
  Transmission Date: 20250408
  Serious: Yes (Hospitalization)
  Sender: ROCHE
  Company Number: US-ROCHE-3513466

PATIENT
  Age: 54 Year
  Sex: Female

DRUGS (5)
  1. XOLAIR [Suspect]
     Active Substance: OMALIZUMAB
     Indication: Urticaria
     Route: 058
     Dates: start: 202310
  2. XOLAIR [Suspect]
     Active Substance: OMALIZUMAB
  3. CROMOLYN SODIUM [Concomitant]
     Active Substance: CROMOLYN SODIUM
  4. GABAPENTIN [Concomitant]
     Active Substance: GABAPENTIN
  5. SOLU-MEDROL [Concomitant]
     Active Substance: METHYLPREDNISOLONE SODIUM SUCCINATE

REACTIONS (11)
  - Off label use [Unknown]
  - Pruritus [Not Recovered/Not Resolved]
  - Urticaria [Not Recovered/Not Resolved]
  - Hypersensitivity [Not Recovered/Not Resolved]
  - Upper-airway cough syndrome [Not Recovered/Not Resolved]
  - Cough [Not Recovered/Not Resolved]
  - Anaphylactic reaction [Unknown]
  - Erythema [Unknown]
  - Secretion discharge [Unknown]
  - Flushing [Unknown]
  - Hypertension [Unknown]

NARRATIVE: CASE EVENT DATE: 20240211
